FAERS Safety Report 6945352-3 (Version None)
Quarter: 2010Q3

REPORT INFORMATION
  Report Type: 
  Country: None (occurrence: None)
  Receive Date: 20100827
  Receipt Date: 20100813
  Transmission Date: 20110219
  Serious: Yes (Hospitalization)
  Sender: FDA-Public Use
  Company Number: CH-ROCHE-579589

PATIENT
  Sex: Female

DRUGS (4)
  1. BONIVA [Suspect]
     Indication: OSTEOPOROSIS POSTMENOPAUSAL
     Dosage: DOSE: 150MG DOSAGE REGIMEN: 1 1 MONTH
     Route: 048
     Dates: start: 20050101, end: 20060301
  2. FOSAMAX [Suspect]
     Indication: OSTEOPOROSIS POSTMENOPAUSAL
     Dosage: DRUG NAME: FOSAMAX X 70 MG WOCHETABLETTEN DOSE: 70 MG DOSAGE REGIMEN: 1 1 WEEK
     Route: 048
     Dates: start: 20020101, end: 20050101
  3. ATORVASTATIN [Concomitant]
     Dosage: DURATION OF USE: LONG TERM USE
     Route: 048
  4. CALCIUM [Concomitant]
     Indication: OSTEOPOROSIS POSTMENOPAUSAL
     Dosage: DURATION OF USE: LONG TERM
     Route: 048

REACTIONS (1)
  - PATHOLOGICAL FRACTURE [None]
